FAERS Safety Report 9512016 (Version 1)
Quarter: 2013Q1

REPORT INFORMATION
  Report Type: Spontaneous
  Country: US (occurrence: None)
  Receive Date: 20130305
  Receipt Date: 20130305
  Transmission Date: 20140127
  Serious: Yes (Other)
  Sender: FDA-Public Use
  Company Number: 163-21880-12010117

PATIENT
  Age: 69 Year
  Sex: Female

DRUGS (4)
  1. REVLIMID (LENALIDOMIDE) (15 MILLIGRAM, CAPSULES) [Suspect]
     Indication: PLASMA CELL MYELOMA
     Dosage: 15 MG, 21 IN 28 D, PO
     Route: 048
     Dates: start: 20110122
  2. PRDAXA (DABIGATRAN ETEXILATE MESILATE) (UNKNOWN) [Concomitant]
  3. ZOMETA (ZOLEDRONIC ACID) (UNKNOWN) [Concomitant]
  4. ARIXTRA (FONDAPARINUX SODIUM) (UNKNOWN) [Concomitant]

REACTIONS (6)
  - Skin exfoliation [None]
  - Rash [None]
  - Influenza like illness [None]
  - Cough [None]
  - Increased tendency to bruise [None]
  - Rash [None]
